FAERS Safety Report 6571817-2 (Version None)
Quarter: 2010Q1

REPORT INFORMATION
  Report Type: 
  Country: None (occurrence: None)
  Receive Date: 20100205
  Receipt Date: 20100127
  Transmission Date: 20100710
  Serious: Yes (Death)
  Sender: FDA-Public Use
  Company Number: CA-AMGEN-QUU388943

PATIENT
  Age: 83 Year
  Sex: Female
  Weight: 52.7 kg

DRUGS (9)
  1. ENBREL [Suspect]
     Indication: RHEUMATOID ARTHRITIS
     Route: 058
     Dates: start: 20030512, end: 20091220
  2. ATENOLOL [Concomitant]
  3. FOLIC ACID [Concomitant]
  4. OMEPRAZOLE [Concomitant]
  5. WARFARIN [Concomitant]
  6. ZOPICLONE [Concomitant]
  7. OXYCODONE HCL AND ACETAMINOPHEN [Concomitant]
  8. OXYCET [Concomitant]
  9. AZATHIOPRINE [Concomitant]

REACTIONS (1)
  - BRONCHIAL CARCINOMA [None]
